FAERS Safety Report 8947464 (Version 2)
Quarter: 2019Q2

REPORT INFORMATION
  Report Type: Spontaneous
  Country: US (occurrence: US)
  Receive Date: 20121204
  Receipt Date: 20190528
  Transmission Date: 20190711
  Serious: Yes (Hospitalization, Disabling, Other)
  Sender: FDA-Public Use
  Company Number: US-009507513-1109USA02803

PATIENT
  Sex: Female
  Weight: 74.84 kg

DRUGS (7)
  1. FOSAMAX [Suspect]
     Active Substance: ALENDRONATE SODIUM
     Indication: OSTEOPOROSIS
     Dosage: 70 MILLIGRAM
     Route: 048
     Dates: start: 200012, end: 200703
  2. BONIVA [Suspect]
     Active Substance: IBANDRONATE SODIUM
     Indication: OSTEOPENIA
  3. FOSAMAX [Suspect]
     Active Substance: ALENDRONATE SODIUM
     Indication: OSTEOPENIA
  4. BONIVA [Suspect]
     Active Substance: IBANDRONATE SODIUM
     Indication: OSTEOPOROSIS
     Dosage: 150  MG, QM
     Route: 048
     Dates: start: 200704, end: 200904
  5. FOSAMAX [Suspect]
     Active Substance: ALENDRONATE SODIUM
     Indication: OSTEOPOROSIS
     Dosage: 10  MG, UNK
     Route: 048
     Dates: start: 199707, end: 200011
  6. FOSAMAX [Suspect]
     Active Substance: ALENDRONATE SODIUM
     Indication: OSTEOPENIA
  7. SYNTHROID [Concomitant]
     Active Substance: LEVOTHYROXINE SODIUM
     Indication: HYPOTHYROIDISM
     Dates: start: 1990

REACTIONS (36)
  - Facial bones fracture [Unknown]
  - Cyst [Unknown]
  - Clostridium test positive [Unknown]
  - Aortic aneurysm [Unknown]
  - Upper respiratory tract infection [Unknown]
  - Limb discomfort [Unknown]
  - Fracture nonunion [Unknown]
  - Bone density decreased [Unknown]
  - Osteoarthritis [Unknown]
  - Varicose vein [Unknown]
  - Diarrhoea [Unknown]
  - Diverticulum [Unknown]
  - Pulmonary mass [Unknown]
  - Atelectasis [Unknown]
  - Iron deficiency anaemia [Unknown]
  - Dyspnoea [Unknown]
  - Burning sensation [Unknown]
  - Femur fracture [Unknown]
  - Haemorrhoids [Unknown]
  - Weight decreased [Unknown]
  - Goitre [Unknown]
  - Foot fracture [Unknown]
  - Sleep apnoea syndrome [Unknown]
  - Goitre [Unknown]
  - Eustachian tube obstruction [Unknown]
  - Gastric ulcer [Unknown]
  - Ankle fracture [Unknown]
  - Irritable bowel syndrome [Unknown]
  - Intramedullary rod insertion [Unknown]
  - Appendix disorder [Unknown]
  - Barrett^s oesophagus [Unknown]
  - Pain in extremity [Unknown]
  - Femoral neck fracture [Unknown]
  - Herpes zoster [Not Recovered/Not Resolved]
  - Bursitis [Unknown]
  - Pain in extremity [Unknown]

NARRATIVE: CASE EVENT DATE: 2003
